FAERS Safety Report 13703014 (Version 1)
Quarter: 2017Q2

REPORT INFORMATION
  Report Type: Spontaneous
  Country: US (occurrence: US)
  Receive Date: 20170629
  Receipt Date: 20170629
  Transmission Date: 20170830
  Serious: No
  Sender: FDA-Public Use
  Company Number: US-EAGLE PHARMACEUTICALS, INC.-US-2017EAG000030

PATIENT

DRUGS (2)
  1. RITUXIMAB [Concomitant]
     Active Substance: RITUXIMAB
     Indication: B-CELL LYMPHOMA
     Dosage: UNK
  2. BENDEKA [Suspect]
     Active Substance: BENDAMUSTINE HYDROCHLORIDE
     Indication: B-CELL LYMPHOMA
     Dosage: 60 ML, UNK

REACTIONS (1)
  - Infusion site pain [Recovered/Resolved]
